FAERS Safety Report 11793885 (Version 1)
Quarter: 2015Q4

REPORT INFORMATION
  Report Type: Spontaneous
  Country: JP (occurrence: JP)
  Receive Date: 20151202
  Receipt Date: 20151202
  Transmission Date: 20160305
  Serious: Yes (Other)
  Sender: FDA-Public Use
  Company Number: JP-SUNOVION-2015SUN001025

PATIENT
  Age: 49 Year
  Sex: Female

DRUGS (3)
  1. ETIZOLAM [Suspect]
     Active Substance: ETIZOLAM
     Route: 048
  2. LUNESTA [Suspect]
     Active Substance: ESZOPICLONE
     Dosage: 20 MG, SINGLE
     Route: 048
     Dates: start: 20150806, end: 20150806
  3. DEPAS [Suspect]
     Active Substance: ETIZOLAM
     Route: 048

REACTIONS (3)
  - Intentional overdose [Unknown]
  - Somnolence [Recovered/Resolved]
  - Suicide attempt [Recovered/Resolved]

NARRATIVE: CASE EVENT DATE: 20150806
